FAERS Safety Report 10267168 (Version 1)
Quarter: 2014Q2

REPORT INFORMATION
  Report Type: Spontaneous
  Country: US (occurrence: US)
  Receive Date: 20140630
  Receipt Date: 20140630
  Transmission Date: 20141212
  Serious: Yes (Other)
  Sender: FDA-Public Use
  Company Number: US-JNJFOC-20140616731

PATIENT
  Age: 81 Year
  Sex: Female

DRUGS (1)
  1. XARELTO [Suspect]
     Indication: THROMBOSIS
     Route: 048

REACTIONS (1)
  - Protein C decreased [Unknown]
